FAERS Safety Report 10145734 (Version 1)
Quarter: 2014Q2

REPORT INFORMATION
  Report Type: Report from Study
  Country: BR (occurrence: BR)
  Receive Date: 20140501
  Receipt Date: 20140501
  Transmission Date: 20141212
  Serious: Yes (Other)
  Sender: FDA-Public Use
  Company Number: PHHY2014BR051816

PATIENT
  Sex: Female
  Weight: 85 kg

DRUGS (2)
  1. FORASEQ [Suspect]
     Indication: ASTHMA
     Dosage: Q12H
     Route: 055
  2. COMBIVENT [Concomitant]
     Dosage: UNK

REACTIONS (9)
  - Pneumonia [Unknown]
  - Immune system disorder [Unknown]
  - Influenza [Unknown]
  - Pulmonary oedema [Unknown]
  - Pyrexia [Unknown]
  - Asthma [Unknown]
  - Oropharyngeal pain [Unknown]
  - Aphagia [Unknown]
  - Speech disorder [Unknown]
